FAERS Safety Report 5840962-9 (Version None)
Quarter: 2008Q3

REPORT INFORMATION
  Report Type: 
  Country: None (occurrence: None)
  Receive Date: 20080811
  Receipt Date: 20080730
  Transmission Date: 20090109
  Serious: Yes (Other)
  Sender: FDA-Public Use
  Company Number: US-PFIZER INC-2008064915

PATIENT
  Sex: Female
  Weight: 78.9 kg

DRUGS (4)
  1. CHANTIX [Suspect]
     Indication: SMOKING CESSATION THERAPY
     Route: 048
     Dates: start: 20080710, end: 20080716
  2. ADVAIR DISKUS 100/50 [Concomitant]
  3. LIPITOR [Concomitant]
  4. PROAIR HFA [Concomitant]

REACTIONS (6)
  - GAIT DISTURBANCE [None]
  - JOINT INJURY [None]
  - JOINT SPRAIN [None]
  - LIMB DISCOMFORT [None]
  - PAIN [None]
  - PAIN IN EXTREMITY [None]
